FAERS Safety Report 4512371-6 (Version None)
Quarter: 2004Q4

REPORT INFORMATION
  Report Type: 
  Country: None (occurrence: None)
  Receive Date: 20041123
  Receipt Date: 20041108
  Transmission Date: 20050328
  Serious: Yes (Hospitalization)
  Sender: FDA-Public Use
  Company Number: FI-ROCHE-354425

PATIENT
  Age: 77 Year
  Sex: Female
  Weight: 54.8 kg

DRUGS (7)
  1. TOLCAPONE (TOLCAPONE) [Suspect]
     Indication: PARKINSON'S DISEASE
     Dosage: 100 MG;3 TIMES A DAY; ORAL
     Route: 048
     Dates: start: 20020925
  2. MADOPARK QUICK [Concomitant]
  3. MADOPAR DEPOT [Concomitant]
  4. CABERGOLINE [Concomitant]
  5. ALPROX [Concomitant]
  6. PROPULSID [Concomitant]
  7. MOVICOL [Concomitant]

REACTIONS (3)
  - BLOOD PRESSURE FLUCTUATION [None]
  - CARDIAC FAILURE [None]
  - URINARY TRACT INFECTION [None]
